FAERS Safety Report 5422151-5 (Version None)
Quarter: 2007Q3

REPORT INFORMATION
  Report Type: 
  Country: None (occurrence: None)
  Receive Date: 20070821
  Receipt Date: 20070821
  Transmission Date: 20080115
  Serious: Yes (Hospitalization)
  Sender: FDA-Public Use
  Company Number: None

PATIENT
  Age: 14 Year
  Sex: Male
  Weight: 69.8539 kg

DRUGS (1)
  1. MERCAPTOPURINE PAR PHARM-CS [Suspect]
     Indication: CROHN'S DISEASE
     Dosage: 50MG QD PO
     Route: 048
     Dates: start: 20070622, end: 20070713

REACTIONS (1)
  - PANCREATITIS [None]
